FAERS Safety Report 9200991 (Version 1)
Quarter: 2013Q1

REPORT INFORMATION
  Report Type: Spontaneous
  Country: US (occurrence: None)
  Receive Date: 20130327
  Receipt Date: 20130327
  Transmission Date: 20140127
  Serious: Yes (Hospitalization)
  Sender: FDA-Public Use
  Company Number: 2013P1003503

PATIENT
  Age: 73 Year
  Sex: Female

DRUGS (9)
  1. INFUMORPH [Suspect]
     Indication: PAIN
  2. INFUMORPH [Suspect]
     Indication: INTERVERTEBRAL DISC DEGENERATION
  3. INFUMORPH [Suspect]
     Indication: SPINAL PAIN
  4. CLONIDINE [Suspect]
     Indication: PAIN
  5. CLONIDINE [Suspect]
     Indication: INTERVERTEBRAL DISC DEGENERATION
  6. CLONIDINE [Suspect]
     Indication: SPINAL PAIN
  7. BUPIVACAINE [Suspect]
     Indication: PAIN
  8. BUPIVACAINE [Suspect]
     Indication: INTERVERTEBRAL DISC DEGENERATION
  9. BUPIVACAINE [Suspect]
     Indication: SPINAL PAIN

REACTIONS (2)
  - Underdose [None]
  - Device malfunction [None]
